FAERS Safety Report 18621993 (Version 2)
Quarter: 2021Q2

REPORT INFORMATION
  Report Type: Spontaneous
  Country: US (occurrence: US)
  Receive Date: 20201216
  Receipt Date: 20210416
  Transmission Date: 20210717
  Serious: No
  Sender: FDA-Public Use
  Company Number: NVSC2020US324671

PATIENT
  Age: 45 Year
  Sex: Male
  Weight: 81.64 kg

DRUGS (1)
  1. COSENTYX [Suspect]
     Active Substance: SECUKINUMAB
     Indication: PSORIASIS
     Dosage: 2 DF, QMO
     Route: 065
     Dates: start: 201911

REACTIONS (3)
  - Nail psoriasis [Unknown]
  - Psoriasis [Unknown]
  - Product dose omission issue [Unknown]

NARRATIVE: CASE EVENT DATE: 20201107
